FAERS Safety Report 8973439 (Version 1)
Quarter: 2012Q4

REPORT INFORMATION
  Report Type: 
  Country: US (occurrence: US)
  Receive Date: 20121218
  Receipt Date: 20121218
  Transmission Date: 20130627
  Serious: Yes (Other)
  Sender: FDA-Public Use
  Company Number: US-BRISTOL-MYERS SQUIBB COMPANY-16787723

PATIENT
  Age: 52 Year
  Sex: Male
  Weight: 113.38 kg

DRUGS (6)
  1. ABILIFY [Suspect]
     Indication: BIPOLAR DISORDER
     Dosage: increased to 15mg/day
     Route: 048
     Dates: start: 20120907
  2. CHANTIX [Suspect]
     Dosage: Restarted on 2011. Jul2012: 1mg
  3. GEODON [Suspect]
     Indication: BIPOLAR DISORDER
  4. LEXAPRO [Suspect]
     Indication: DEPRESSION
  5. XANAX [Concomitant]
     Indication: ANXIETY
  6. LISINOPRIL [Concomitant]
     Indication: HYPERTENSION
     Dosage: 1 DF = 20/25 mg/daily

REACTIONS (11)
  - Suicidal ideation [Unknown]
  - Libido decreased [Unknown]
  - Diarrhoea [Unknown]
  - Constipation [Unknown]
  - Anxiety [Unknown]
  - Sleep disorder [Unknown]
  - Blood triglycerides increased [Unknown]
  - Ejaculation disorder [Unknown]
  - Muscle spasms [Unknown]
  - Thirst [Unknown]
  - Urinary retention [Unknown]
